FAERS Safety Report 5314122-4 (Version None)
Quarter: 2007Q2

REPORT INFORMATION
  Report Type: 
  Country: None (occurrence: None)
  Receive Date: 20070426
  Receipt Date: 20070411
  Transmission Date: 20071010
  Serious: Yes (Other)
  Sender: FDA-Public Use
  Company Number: GXKR2007GB03485

PATIENT
  Age: 50 Year
  Sex: Male

DRUGS (3)
  1. CYCLOSPORINE [Suspect]
     Indication: RENAL TRANSPLANT
     Dosage: 200 MG, BID
  2. AZATHIOPRINE [Suspect]
     Indication: RENAL TRANSPLANT
     Dosage: 50 MG, QD, UNKNOWN
  3. CARBAMAZEPINE [Suspect]

REACTIONS (6)
  - FOLLICULITIS [None]
  - GRANULOMA [None]
  - HYPERTRICHOSIS [None]
  - PSEUDOFOLLICULITIS BARBAE [None]
  - SEBACEOUS HYPERPLASIA [None]
  - SQUAMOUS CELL CARCINOMA [None]
